FAERS Safety Report 22303386 (Version 1)
Quarter: 2023Q2

REPORT INFORMATION
  Report Type: Spontaneous
  Country: US (occurrence: None)
  Receive Date: 20230510
  Receipt Date: 20230510
  Transmission Date: 20230721
  Serious: Yes (Other)
  Sender: FDA-Public Use
  Company Number: 2023A104418

PATIENT

DRUGS (1)
  1. SYMBICORT [Suspect]
     Active Substance: BUDESONIDE\FORMOTEROL FUMARATE DIHYDRATE
     Dosage: UNKNOWN UNKNOWN
     Route: 055

REACTIONS (11)
  - Pneumothorax [Unknown]
  - Speech disorder [Unknown]
  - Asthenia [Unknown]
  - Hypoacusis [Unknown]
  - Dyspnoea [Unknown]
  - Dizziness [Unknown]
  - Emotional distress [Unknown]
  - Tremor [Unknown]
  - Device delivery system issue [Unknown]
  - Device malfunction [Unknown]
  - Device use issue [Unknown]
